FAERS Safety Report 4309202-6 (Version None)
Quarter: 2004Q1

REPORT INFORMATION
  Report Type: 
  Country: None (occurrence: None)
  Receive Date: 20040301
  Receipt Date: 20040220
  Transmission Date: 20041129
  Serious: Yes (Hospitalization)
  Sender: FDA-Public Use
  Company Number: STA-AE-04-MTX-075

PATIENT
  Age: 65 Year
  Sex: Female

DRUGS (4)
  1. RHEUMATREX [Suspect]
     Indication: RHEUMATOID ARTHRITIS
     Dosage: 6 MG 1X PER 1 WK, ORAL
     Route: 048
     Dates: start: 20010723, end: 20040121
  2. MOBIC [Concomitant]
  3. ISALON (ALDIOXA) [Concomitant]
  4. FLUCAM (AMPIROXICAM) [Concomitant]

REACTIONS (3)
  - MARROW HYPERPLASIA [None]
  - MYELODYSPLASTIC SYNDROME [None]
  - PANCYTOPENIA [None]
